FAERS Safety Report 10580171 (Version 2)
Quarter: 2014Q4

REPORT INFORMATION
  Report Type: Spontaneous
  Country: CA (occurrence: CA)
  Receive Date: 20141112
  Receipt Date: 20141112
  Transmission Date: 20150529
  Serious: Yes (Other)
  Sender: FDA-Public Use
  Company Number: CA-PFIZER INC-2014303571

PATIENT
  Age: 84 Year
  Sex: Female

DRUGS (11)
  1. ATORVASTATIN APOTEX [Concomitant]
     Indication: BLOOD CHOLESTEROL
     Dosage: 20 MG, 1X/DAY
     Dates: start: 20140113
  2. DILANTIN [Suspect]
     Active Substance: PHENYTOIN
     Indication: SEIZURE
     Dosage: 100 MG (1 TABLET), 2X/DAY
     Route: 048
     Dates: start: 1999
  3. AMITRIPTYLINE [Interacting]
     Active Substance: AMITRIPTYLINE
     Dosage: UNK
  4. PMS-METOPROLOL-L [Concomitant]
     Indication: BLOOD PRESSURE
     Dosage: 100 MG (1 TABLET), 2X/DAY
     Dates: start: 20140113
  5. NOVO-LORAZEM [Concomitant]
     Dosage: 0.5 MG, (1 OR 2 TABLETS) AT BEDTIME AS NEEDED
     Dates: start: 20140820
  6. APO-CLOPIDOGREL [Concomitant]
     Active Substance: CLOPIDOGREL BISULFATE
     Dosage: 75 MG (1 TABLET), 1X/DAY
     Dates: start: 20140719
  7. ELTROXIN [Concomitant]
     Active Substance: LEVOTHYROXINE
     Indication: THYROID DISORDER
     Dosage: 0.1 MG (1 TABLET), 1X/DAY (AT BEDTIME)
     Dates: start: 20140326
  8. APO-AMLODIPINE [Concomitant]
     Active Substance: AMLODIPINE BESYLATE
     Dosage: 10 MG (1 TABLET), 1X/DAY
     Dates: start: 20140428
  9. COVERSYL [Concomitant]
     Active Substance: PERINDOPRIL
     Indication: BLOOD PRESSURE
     Dosage: 8 MG, 1X/DAY
     Dates: start: 20140719
  10. NOVO-CARBAMAZ [Concomitant]
     Dosage: 200 MG, 2X/DAY
     Dates: start: 20140719
  11. NOVO-CARBAMAZ [Concomitant]
     Dosage: 400 MG, (2 TABLETS) 1X/DAY (AT BEDTIME)
     Dates: start: 20140719

REACTIONS (3)
  - Seizure [Recovered/Resolved]
  - Drug interaction [Recovered/Resolved]
  - Product quality issue [Recovered/Resolved]

NARRATIVE: CASE EVENT DATE: 2014
